FAERS Safety Report 4620585-X (Version None)
Quarter: 2005Q1

REPORT INFORMATION
  Report Type: 
  Country: None (occurrence: None)
  Receive Date: 20050324
  Receipt Date: 20050317
  Transmission Date: 20050727
  Serious: Yes (Life-Threatening, Hospitalization)
  Sender: FDA-Public Use
  Company Number: 6013676

PATIENT
  Age: 88 Year
  Sex: Female

DRUGS (6)
  1. EMCONCOR COR 2.5 MG (BISOPROLOL) [Suspect]
     Dosage: 2,5 MG (2,5 MG, 1 IN 1 D)
     Route: 048
     Dates: end: 20040718
  2. PLAVIX [Concomitant]
  3. RAMIPRIL [Concomitant]
  4. ANAGRASTA (PANTOPRAZOLE SODIUM) [Concomitant]
  5. LIPEMOL (PRAVASTATIN SODIUM) [Concomitant]
  6. FUROSEMIDE [Concomitant]

REACTIONS (1)
  - ATRIOVENTRICULAR BLOCK [None]
